FAERS Safety Report 4427459-8 (Version None)
Quarter: 2004Q3

REPORT INFORMATION
  Report Type: 
  Country: None (occurrence: None)
  Receive Date: 20040812
  Receipt Date: 20040806
  Transmission Date: 20050211
  Serious: Yes (Life-Threatening, Hospitalization)
  Sender: FDA-Public Use
  Company Number: 2004PK01332

PATIENT
  Age: 59 Year
  Sex: Male
  Weight: 125 kg

DRUGS (4)
  1. SEROQUEL [Suspect]
     Indication: MANIA
     Dosage: 1000 MG DAILY PO
     Route: 048
     Dates: start: 20040624
  2. ERGENYL [Suspect]
     Indication: MANIA
     Dosage: 2400 MG DAILY PO
     Route: 048
     Dates: start: 20040630
  3. RIVOTRIL [Suspect]
     Indication: MANIA
     Dosage: 4 MG DAILY PO
     Route: 048
     Dates: start: 20040719
  4. XANEF [Suspect]
     Indication: HYPERTENSION
     Dosage: 20 MG DAILY PO
     Route: 048

REACTIONS (5)
  - BLOOD CREATINE INCREASED [None]
  - BLOOD GLUCOSE INCREASED [None]
  - C-REACTIVE PROTEIN INCREASED [None]
  - DEEP VEIN THROMBOSIS [None]
  - PULMONARY EMBOLISM [None]
